FAERS Safety Report 23115021 (Version 1)
Quarter: 2023Q4

REPORT INFORMATION
  Report Type: Spontaneous
  Country: TW (occurrence: TW)
  Receive Date: 20231027
  Receipt Date: 20231027
  Transmission Date: 20240110
  Serious: Yes (Other)
  Sender: FDA-Public Use
  Company Number: TW-AMGEN-TWNSP2023187775

PATIENT
  Age: 62 Year
  Sex: Female

DRUGS (1)
  1. PROLIA [Suspect]
     Active Substance: DENOSUMAB
     Indication: Osteoporosis postmenopausal
     Dosage: 60 MILLIGRAM, Q6MO
     Route: 058

REACTIONS (2)
  - Pulpless tooth [Unknown]
  - Arthropathy [Unknown]
